FAERS Safety Report 12231029 (Version 1)
Quarter: 2016Q2

REPORT INFORMATION
  Report Type: Spontaneous
  Country: CA (occurrence: CA)
  Receive Date: 20160401
  Receipt Date: 20160401
  Transmission Date: 20160815
  Serious: Yes (Other)
  Sender: FDA-Public Use
  Company Number: CA-BAYER-2016-060322

PATIENT
  Age: 32 Year
  Sex: Female

DRUGS (2)
  1. INTERFERON BETA-1A [INTERFERON BETA-1A] [Suspect]
     Active Substance: INTERFERON BETA-1A
     Indication: MULTIPLE SCLEROSIS
     Dosage: 0.44 ?G, 3 TIMES EVERY WEEK
     Route: 058
  2. BETASERON [Suspect]
     Active Substance: INTERFERON BETA-1B
     Indication: MULTIPLE SCLEROSIS
     Dosage: 5.0 MG, UNK

REACTIONS (1)
  - Pulmonary tuberculosis [None]
